FAERS Safety Report 19179878 (Version 1)
Quarter: 2021Q2

REPORT INFORMATION
  Report Type: Spontaneous
  Country: ZA (occurrence: ZA)
  Receive Date: 20210426
  Receipt Date: 20210426
  Transmission Date: 20210717
  Serious: Yes (Other)
  Sender: FDA-Public Use
  Company Number: ZA-ASTRAZENECA-2021A348955

PATIENT
  Sex: Female

DRUGS (1)
  1. FORXIGA [Suspect]
     Active Substance: DAPAGLIFLOZIN
     Indication: TYPE 2 DIABETES MELLITUS
     Route: 048

REACTIONS (4)
  - Hypersensitivity [Unknown]
  - Rash [Unknown]
  - Lip swelling [Unknown]
  - Swollen tongue [Unknown]
